FAERS Safety Report 19159289 (Version 1)
Quarter: 2021Q2

REPORT INFORMATION
  Report Type: Spontaneous
  Country: US (occurrence: US)
  Receive Date: 20210420
  Receipt Date: 20210420
  Transmission Date: 20210717
  Serious: No
  Sender: FDA-Public Use
  Company Number: US-PFIZER INC-2021319287

PATIENT
  Sex: Male

DRUGS (1)
  1. SUTENT [Suspect]
     Active Substance: SUNITINIB MALATE
     Indication: NEUROENDOCRINE TUMOUR
     Dosage: UNK

REACTIONS (1)
  - Headache [Unknown]
